FAERS Safety Report 9931102 (Version 1)
Quarter: 2014Q1

REPORT INFORMATION
  Report Type: Spontaneous
  Country: JP (occurrence: JP)
  Receive Date: 20140227
  Receipt Date: 20140227
  Transmission Date: 20141002
  Serious: Yes (Other)
  Sender: FDA-Public Use
  Company Number: JP-BRISTOL-MYERS SQUIBB COMPANY-20267175

PATIENT
  Sex: Female

DRUGS (1)
  1. ABILIFY TABS [Suspect]
     Route: 048

REACTIONS (5)
  - Hallucination [Unknown]
  - Hallucination, auditory [Not Recovered/Not Resolved]
  - Dyskinesia [Unknown]
  - Urinary incontinence [Unknown]
  - Weight increased [Unknown]
